FAERS Safety Report 12933727 (Version 1)
Quarter: 2016Q4

REPORT INFORMATION
  Report Type: Spontaneous
  Country: JP (occurrence: JP)
  Receive Date: 20161111
  Receipt Date: 20161111
  Transmission Date: 20170207
  Serious: Yes (Hospitalization)
  Sender: FDA-Public Use
  Company Number: JP-FRESENIUS KABI-FK201608614

PATIENT
  Age: 60 Year
  Sex: Male

DRUGS (4)
  1. DEXAMETHASONE INJECTION (MANUFACTURER UNKNOWN) [Suspect]
     Active Substance: DEXAMETHASONE
     Indication: RADIATION PNEUMONITIS
     Route: 065
  2. RADIOTHERAPY [Concomitant]
     Active Substance: RADIATION THERAPY
     Indication: METASTASES TO BONE
  3. DEXAMETHASONE INJECTION (MANUFACTURER UNKNOWN) [Suspect]
     Active Substance: DEXAMETHASONE
     Indication: MYELITIS
     Route: 065
  4. RADIOTHERAPY [Concomitant]
     Active Substance: RADIATION THERAPY
     Indication: LUNG NEOPLASM MALIGNANT
     Route: 050

REACTIONS (1)
  - Pneumocystis jirovecii pneumonia [Unknown]
